FAERS Safety Report 4430116-5 (Version None)
Quarter: 2004Q3

REPORT INFORMATION
  Report Type: 
  Country: None (occurrence: None)
  Receive Date: 20040820
  Receipt Date: 20040811
  Transmission Date: 20050211
  Serious: Yes (Hospitalization)
  Sender: FDA-Public Use
  Company Number: US-ROCHE-377610

PATIENT
  Sex: Male

DRUGS (2)
  1. FUZEON [Suspect]
     Indication: DRUG USE FOR UNKNOWN INDICATION
     Route: 058
     Dates: start: 20030615
  2. ANTIVIRAL [Suspect]
     Indication: DRUG USE FOR UNKNOWN INDICATION
     Dosage: FIVE ANTIVIRALS TAKEN CONCOMITANTLY.
     Route: 065

REACTIONS (4)
  - CHOLECYSTECTOMY [None]
  - DYSPEPSIA [None]
  - FAT TISSUE INCREASED [None]
  - LIPOHYPERTROPHY [None]
